FAERS Safety Report 4617750-4 (Version None)
Quarter: 2005Q1

REPORT INFORMATION
  Report Type: 
  Country: None (occurrence: None)
  Receive Date: 20050324
  Receipt Date: 20050315
  Transmission Date: 20050727
  Serious: Yes (Hospitalization)
  Sender: FDA-Public Use
  Company Number: FR-BRISTOL-MYERS SQUIBB COMPANY-12901112

PATIENT
  Age: 67 Year
  Sex: Male

DRUGS (10)
  1. AMIKLIN POWDER [Suspect]
     Route: 042
     Dates: start: 20050107, end: 20050113
  2. CLAFORAN [Suspect]
     Route: 042
     Dates: start: 20041230, end: 20050127
  3. TIBERAL [Suspect]
     Route: 042
     Dates: start: 20041230, end: 20050116
  4. SOLU-MEDROL [Suspect]
     Route: 042
     Dates: start: 20041230, end: 20050118
  5. TRIFLUCAN [Suspect]
     Dates: start: 20050107, end: 20050113
  6. VANCOMYCIN [Suspect]
     Dates: start: 20041230, end: 20050112
  7. RIVOTRIL [Concomitant]
     Dates: start: 20041230
  8. ACTRAPID [Concomitant]
  9. MIDAZOLAM HCL [Concomitant]
     Dosage: GIVEN 12/30/04 TO 1/3/05 AND 1/7/05, AND 1/9/05
     Dates: start: 20041230, end: 20050109
  10. FENTANYL [Concomitant]
     Dosage: GIVEN FROM 12/30/04 TO 1/3/05, 1/7/05, 1/9/05
     Dates: start: 20041230, end: 20050109

REACTIONS (1)
  - THROMBOCYTOPENIA [None]
